FAERS Safety Report 19906615 (Version 1)
Quarter: 2021Q3

REPORT INFORMATION
  Report Type: Spontaneous
  Country: US (occurrence: US)
  Receive Date: 20210930
  Receipt Date: 20210930
  Transmission Date: 20211014
  Serious: No
  Sender: FDA-Public Use
  Company Number: None

PATIENT
  Age: 35 Year
  Sex: Male

DRUGS (1)
  1. HEPARIN (HEPARIN NA 5000 UNT/0.5ML TUBEX, 0.5ML) [Suspect]
     Active Substance: HEPARIN SODIUM
     Dosage: ?          OTHER DOSE:5000 UNITS;?
     Route: 042
     Dates: start: 20210712, end: 20210727

REACTIONS (1)
  - Thrombocytopenia [None]

NARRATIVE: CASE EVENT DATE: 20210727
